FAERS Safety Report 21965433 (Version 1)
Quarter: 2023Q1

REPORT INFORMATION
  Report Type: Spontaneous
  Country: US (occurrence: US)
  Receive Date: 20230208
  Receipt Date: 20230208
  Transmission Date: 20230417
  Serious: Yes (Other)
  Sender: FDA-Public Use
  Company Number: US-GLENMARK PHARMACEUTICALS-2022GMK073042

PATIENT

DRUGS (7)
  1. ZONISAMIDE [Suspect]
     Active Substance: ZONISAMIDE
     Indication: Seizure
     Dosage: 400 MILLIGRAM, QD
     Route: 048
  2. GABAPENTIN [Concomitant]
     Active Substance: GABAPENTIN
     Indication: Seizure
     Dosage: 400 MILLIGRAM, TID (STARTED YEARS AGO FROM THIS REPORT)
     Route: 048
  3. LAMOTRIGINE [Concomitant]
     Active Substance: LAMOTRIGINE
     Indication: Seizure
     Dosage: 100 MILLIGRAM, BID (STARTED YEARS AGO FROM THIS REPORT)
     Route: 048
  4. OXCARBAZEPINE [Concomitant]
     Active Substance: OXCARBAZEPINE
     Indication: Seizure
     Dosage: 300 MILLIGRAM, TID
     Route: 048
  5. LEVOTHYROXINE [Concomitant]
     Active Substance: LEVOTHYROXINE
     Indication: Thyroid disorder
     Dosage: 50 MICROGRAM, OD (STARTED PROBABLY IN APR-2022)
     Route: 048
  6. EZETIMIBE [Concomitant]
     Active Substance: EZETIMIBE
     Indication: Blood cholesterol abnormal
     Dosage: 2 MILLIGRAM, OD (STARTED PROBABLY FROM 2 TO 3 YEARS AGO FROM THIS REPORT)
     Route: 048
  7. ODOMZO [Concomitant]
     Active Substance: SONIDEGIB
     Indication: Neoplasm malignant
     Dosage: 200 MILLIGRAM, OD (STOPPED DUE TO DIZZINESS)
     Route: 048

REACTIONS (4)
  - Visual impairment [Recovering/Resolving]
  - Recalled product administered [Unknown]
  - Gait disturbance [Recovering/Resolving]
  - Dizziness [Recovering/Resolving]

NARRATIVE: CASE EVENT DATE: 20210901
